FAERS Safety Report 5758965-1 (Version None)
Quarter: 2008Q2

REPORT INFORMATION
  Report Type: 
  Country: None (occurrence: None)
  Receive Date: 20080602
  Receipt Date: 20080514
  Transmission Date: 20081010
  Serious: Yes (Hospitalization)
  Sender: FDA-Public Use
  Company Number: DSA_31894_2008

PATIENT
  Age: 75 Year
  Sex: Female

DRUGS (4)
  1. RENIVACE (RENIVACE) (NOT SPECIFIED) [Suspect]
     Indication: HYPERTENSION
     Dosage: 2.5 MG QD; ORAL
     Route: 048
  2. ACTIVASE [Suspect]
     Indication: EMBOLIC STROKE
     Dosage: 0.6 MG/KG QD; INTRAVENOUS (NOT OTHERWISE SPECIFIED))
     Route: 042
  3. TRICHLORMETHIAZIDE [Concomitant]
  4. ASPIRIN [Concomitant]

REACTIONS (6)
  - ANGIOEDEMA [None]
  - ATRIAL FIBRILLATION [None]
  - CEREBRAL ARTERY OCCLUSION [None]
  - EMBOLIC STROKE [None]
  - FALL [None]
  - UNRESPONSIVE TO STIMULI [None]
